FAERS Safety Report 9984275 (Version 2)
Quarter: 2015Q1

REPORT INFORMATION
  Report Type: Report from Study
  Country: US (occurrence: US)
  Receive Date: 20140307
  Receipt Date: 20150216
  Transmission Date: 20150721
  Serious: Yes (Hospitalization, Other)
  Sender: FDA-Public Use
  Company Number: US-ABBVIE-13P-163-1182673-00

PATIENT
  Age: 71 Year
  Sex: Male

DRUGS (12)
  1. HUMIRA [Suspect]
     Active Substance: ADALIMUMAB
     Dates: start: 20131220, end: 20131220
  2. HUMIRA [Suspect]
     Active Substance: ADALIMUMAB
     Dates: start: 20140103, end: 20140220
  3. HUMIRA [Suspect]
     Active Substance: ADALIMUMAB
     Indication: COLITIS ULCERATIVE
     Dates: start: 20131122, end: 20131122
  4. HUMIRA [Suspect]
     Active Substance: ADALIMUMAB
     Dates: start: 20131206, end: 20131206
  5. RAMIPRIL. [Concomitant]
     Active Substance: RAMIPRIL
     Indication: HYPERTENSION
  6. MULTIVITAMIN [Concomitant]
     Active Substance: VITAMINS
     Indication: PRODUCT USED FOR UNKNOWN INDICATION
  7. MYRBETRIQ [Concomitant]
     Active Substance: MIRABEGRON
     Indication: URINARY INCONTINENCE
  8. PREDNISONE. [Concomitant]
     Active Substance: PREDNISONE
     Indication: MYASTHENIA GRAVIS
  9. NITROFURANTOIN MONO/MAC [Concomitant]
     Indication: BLADDER DISORDER
  10. MESTINON [Concomitant]
     Active Substance: PYRIDOSTIGMINE BROMIDE
     Indication: MYASTHENIA GRAVIS
  11. SPIRIVA [Concomitant]
     Active Substance: TIOTROPIUM BROMIDE MONOHYDRATE
     Indication: RESPIRATORY DISORDER
  12. MARIJUANA [Concomitant]
     Active Substance: CANNABIS SATIVA SUBSP. INDICA TOP
     Indication: DECREASED APPETITE

REACTIONS (7)
  - Drug ineffective [Unknown]
  - Diarrhoea [Not Recovered/Not Resolved]
  - Pain [Recovering/Resolving]
  - Drug ineffective [Unknown]
  - Colectomy [Recovering/Resolving]
  - Escherichia infection [Unknown]
  - Colitis ulcerative [Not Recovered/Not Resolved]

NARRATIVE: CASE EVENT DATE: 20131122
